FAERS Safety Report 4264803-9 (Version None)
Quarter: 2004Q1

REPORT INFORMATION
  Report Type: 
  Country: None (occurrence: None)
  Receive Date: 20040105
  Receipt Date: 20031229
  Transmission Date: 20041129
  Serious: Yes (Hospitalization, Other)
  Sender: FDA-Public Use
  Company Number: 200115040BWH

PATIENT
  Age: 44 Year
  Sex: Male
  Weight: 81.6475 kg

DRUGS (18)
  1. MOXIFLOXACIN HCL [Suspect]
     Indication: ABDOMINAL INFECTION
     Dosage: SEE IMAGE
     Dates: start: 20011102, end: 20011107
  2. MOXIFLOXACIN HCL [Suspect]
     Indication: ABDOMINAL INFECTION
     Dosage: SEE IMAGE
     Dates: start: 20011107
  3. DEMEROL /CAN/ [Concomitant]
  4. TOPROL-XL [Concomitant]
  5. ASPIRIN [Concomitant]
  6. PRINIVIL [Concomitant]
  7. ZOCOR [Concomitant]
  8. PERCOCET /OLD FORM/ [Concomitant]
  9. NITROUS OXIDE [Concomitant]
  10. DESFLURANE [Concomitant]
  11. ROCURONIUM [Concomitant]
  12. PROPOFOL [Concomitant]
  13. PEPCID [Concomitant]
  14. MORPHINE [Concomitant]
  15. TORADOL [Concomitant]
  16. LEVAQUIN [Concomitant]
  17. TPN [Concomitant]
  18. DEMEROL /CAN/ [Concomitant]

REACTIONS (8)
  - ANOREXIA [None]
  - CONSTIPATION [None]
  - DRUG EFFECT PROLONGED [None]
  - ILEUS [None]
  - NAUSEA [None]
  - NECROSIS [None]
  - PULMONARY OEDEMA [None]
  - WOUND DEHISCENCE [None]
